FAERS Safety Report 9383011 (Version 1)
Quarter: 2013Q3

REPORT INFORMATION
  Report Type: Spontaneous
  Country: US (occurrence: US)
  Receive Date: 20130703
  Receipt Date: 20130703
  Transmission Date: 20140515
  Serious: No
  Sender: FDA-Public Use
  Company Number: US-009507513-1307USA000998

PATIENT
  Sex: Female

DRUGS (1)
  1. JANUVIA [Suspect]
     Indication: DIABETES MELLITUS MANAGEMENT
     Dosage: 100 MG, QD
     Route: 048
     Dates: end: 2013

REACTIONS (3)
  - Mastocytosis [Unknown]
  - Eosinophil count abnormal [Unknown]
  - Rash [Unknown]
